FAERS Safety Report 9210110 (Version 4)
Quarter: 2013Q2

REPORT INFORMATION
  Report Type: Report from Study
  Country: US (occurrence: US)
  Receive Date: 20130404
  Receipt Date: 20130423
  Transmission Date: 20140414
  Serious: Yes (Hospitalization)
  Sender: FDA-Public Use
  Company Number: US-ROCHE-1177053

PATIENT
  Sex: Female
  Weight: 189 kg

DRUGS (17)
  1. OMALIZUMAB [Suspect]
     Indication: ASTHMA
     Dosage: MOST RECENT DOSE:19/DEC/2012, LAST DOSE PRIOR TO THE EVENT : 300 MG
     Route: 058
     Dates: start: 200702
  2. OMALIZUMAB [Suspect]
     Route: 058
     Dates: start: 20120821
  3. OMALIZUMAB [Suspect]
     Route: 058
     Dates: start: 20120925
  4. OMALIZUMAB [Suspect]
     Route: 058
     Dates: start: 20121219
  5. OMALIZUMAB [Suspect]
     Route: 058
     Dates: start: 20121226
  6. OMALIZUMAB [Suspect]
     Route: 058
     Dates: start: 20130108
  7. OMALIZUMAB [Suspect]
     Route: 058
     Dates: start: 20130205
  8. OMALIZUMAB [Suspect]
     Dosage: DATE OF LAST DOSE PRIOR TO THE SAE: 05/MAR/2013
     Route: 058
     Dates: start: 20130305
  9. FOLGARD [Concomitant]
     Route: 048
  10. LOVENOX [Concomitant]
     Indication: GENE MUTATION
     Route: 058
  11. XOPENEX [Concomitant]
     Indication: ASTHMA
     Route: 050
  12. ALBUTEROL [Concomitant]
     Indication: ASTHMA
     Route: 050
  13. ATROVENT [Concomitant]
     Indication: ASTHMA
     Route: 050
  14. TUMS [Concomitant]
     Indication: DYSPEPSIA
     Route: 048
  15. PEPCID [Concomitant]
     Indication: DYSPEPSIA
     Route: 048
  16. BACTROBAN [Concomitant]
     Indication: SKIN INFECTION
     Route: 061
  17. ROBITUSSIN AC (UNITED STATES) [Concomitant]
     Route: 048

REACTIONS (3)
  - Exposure during pregnancy [Unknown]
  - Bronchitis viral [Recovered/Resolved]
  - Viral upper respiratory tract infection [Recovered/Resolved]
